FAERS Safety Report 20688341 (Version 1)
Quarter: 2022Q2

REPORT INFORMATION
  Report Type: Spontaneous
  Country: US (occurrence: US)
  Receive Date: 20220408
  Receipt Date: 20220408
  Transmission Date: 20220720
  Serious: Yes (Other)
  Sender: FDA-Public Use
  Company Number: US-SANOFI-01045771

PATIENT
  Sex: Male

DRUGS (2)
  1. LOVENOX [Suspect]
     Active Substance: ENOXAPARIN SODIUM
     Indication: Deep vein thrombosis
     Dosage: 130 MG, QD
  2. LOVENOX [Suspect]
     Active Substance: ENOXAPARIN SODIUM
     Indication: Pulmonary embolism

REACTIONS (4)
  - Lung neoplasm malignant [Unknown]
  - Injection site bruising [Unknown]
  - Dyspnoea [Unknown]
  - Injection site pain [Unknown]
